FAERS Safety Report 16652297 (Version 1)
Quarter: 2019Q3

REPORT INFORMATION
  Report Type: Spontaneous
  Country: US (occurrence: US)
  Receive Date: 20190731
  Receipt Date: 20190731
  Transmission Date: 20191004
  Serious: Yes (Hospitalization, Disabling, Other)
  Sender: FDA-Public Use
  Company Number: US-JNJFOC-20190736701

PATIENT
  Age: 48 Year
  Sex: Male

DRUGS (1)
  1. INVOKANA [Suspect]
     Active Substance: CANAGLIFLOZIN
     Indication: PRODUCT USED FOR UNKNOWN INDICATION
     Route: 048

REACTIONS (7)
  - Joint injury [Unknown]
  - Gangrene [Unknown]
  - Wound dehiscence [Unknown]
  - Localised infection [Unknown]
  - Diabetic foot [Unknown]
  - Osteomyelitis [Unknown]
  - Limb amputation [Unknown]

NARRATIVE: CASE EVENT DATE: 2016
